FAERS Safety Report 18203670 (Version 1)
Quarter: 2020Q3

REPORT INFORMATION
  Report Type: Spontaneous
  Country: US (occurrence: US)
  Receive Date: 20200827
  Receipt Date: 20200827
  Transmission Date: 20201103
  Serious: No
  Sender: FDA-Public Use
  Company Number: US-TARO-2019TAR00858

PATIENT

DRUGS (1)
  1. TERBINAFINE HCL CREAM 1% (ATHLETES FOOT) [Suspect]
     Active Substance: TERBINAFINE HYDROCHLORIDE
     Dosage: UNK

REACTIONS (1)
  - Drug ineffective [Unknown]
